FAERS Safety Report 12684816 (Version 12)
Quarter: 2024Q1

REPORT INFORMATION
  Report Type: Report from Study
  Country: US (occurrence: US)
  Receive Date: 20160825
  Receipt Date: 20240320
  Transmission Date: 20240409
  Serious: Yes (Death, Other)
  Sender: FDA-Public Use
  Company Number: US-GLAXOSMITHKLINE-US2016GSK122459

PATIENT
  Age: 42 Year
  Sex: Female
  Weight: 127 kg

DRUGS (9)
  1. METHOTREXATE [Suspect]
     Active Substance: METHOTREXATE
     Indication: Systemic lupus erythematosus
     Dosage: 25 MG, WE
     Dates: start: 20140122, end: 20160713
  2. LEFLUNOMIDE [Suspect]
     Active Substance: LEFLUNOMIDE
     Indication: Systemic lupus erythematosus
     Dosage: 20 MG, QD
     Dates: start: 20160616, end: 20160713
  3. PREDNISOLONE [Concomitant]
     Active Substance: PREDNISOLONE
     Indication: Systemic lupus erythematosus
     Dosage: UNK
  4. ARAVA [Concomitant]
     Active Substance: LEFLUNOMIDE
     Indication: Systemic lupus erythematosus
     Dosage: 20 MG, QD
     Dates: start: 20160616, end: 20160713
  5. DAPSONE [Concomitant]
     Active Substance: DAPSONE
     Indication: Systemic lupus erythematosus
     Dosage: UNK
  6. PROTOPIC [Concomitant]
     Active Substance: TACROLIMUS
     Indication: Systemic lupus erythematosus
  7. CLOBETASOL [Concomitant]
     Active Substance: CLOBETASOL
     Indication: Systemic lupus erythematosus
  8. VANCOMYCIN [Concomitant]
     Active Substance: VANCOMYCIN
     Indication: Systemic lupus erythematosus
     Dosage: UNK
  9. AZTREONAM [Concomitant]
     Active Substance: AZTREONAM
     Indication: Systemic lupus erythematosus

REACTIONS (1)
  - Sepsis [Fatal]

NARRATIVE: CASE EVENT DATE: 20160713
